FAERS Safety Report 12368600 (Version 1)
Quarter: 2016Q2

REPORT INFORMATION
  Report Type: Spontaneous
  Country: US (occurrence: US)
  Receive Date: 20160513
  Receipt Date: 20160513
  Transmission Date: 20160815
  Serious: No
  Sender: FDA-Public Use
  Company Number: US-JNJFOC-20160414915

PATIENT
  Age: 77 Year
  Sex: Female
  Weight: 47.63 kg

DRUGS (12)
  1. LEVOTHYROXINE. [Concomitant]
     Active Substance: LEVOTHYROXINE
     Indication: HYPOTHYROIDISM
     Dosage: 50  YEARS
     Route: 065
  2. RANITIDINE. [Concomitant]
     Active Substance: RANITIDINE
     Indication: GASTROOESOPHAGEAL REFLUX DISEASE
     Dosage: FOR 8 YEARS
     Route: 065
     Dates: start: 2007
  3. BIOTIN [Concomitant]
     Active Substance: BIOTIN
     Indication: HAIR GROWTH ABNORMAL
     Dosage: FOR 1 YEAR
     Route: 065
  4. OMEPRAZOLE. [Concomitant]
     Active Substance: OMEPRAZOLE
     Indication: GASTROOESOPHAGEAL REFLUX DISEASE
     Dosage: SINCE 2007 FOR 8 YEARS
     Route: 065
     Dates: start: 2007
  5. MAGNESIUM [Concomitant]
     Active Substance: MAGNESIUM
     Indication: MUSCLE SPASMS
     Dosage: 3 YEARS
     Route: 065
  6. ACETMINOPHEN PM [Concomitant]
     Indication: SLEEP DISORDER
     Dosage: 5 YEARS
     Route: 065
  7. WOMENS ROGAINE [Suspect]
     Active Substance: MINOXIDIL
     Indication: ALOPECIA
     Dosage: ONE DROPPER FULL
     Route: 061
  8. LORATADINE. [Concomitant]
     Active Substance: LORATADINE
     Indication: MULTIPLE ALLERGIES
     Dosage: SINCE 2007 FOR 8 YEARS
     Route: 065
     Dates: start: 2007
  9. ACETMINOPHEN PM [Concomitant]
     Indication: PAIN
     Dosage: 5 YEARS
     Route: 065
  10. WOMENS ROGAINE [Suspect]
     Active Substance: MINOXIDIL
     Route: 061
  11. MULTI VITAMIN [Concomitant]
     Active Substance: VITAMINS
     Indication: OSTEOPENIA
     Route: 065
  12. CALCIUM + VIT D [Concomitant]
     Active Substance: CALCIUM\VITAMIN D
     Indication: OSTEOPENIA
     Route: 065

REACTIONS (2)
  - Drug effect incomplete [Unknown]
  - Trichorrhexis [Not Recovered/Not Resolved]
